FAERS Safety Report 21848723 (Version 1)
Quarter: 2023Q1

REPORT INFORMATION
  Report Type: Spontaneous
  Country: US (occurrence: None)
  Receive Date: 20230110
  Receipt Date: 20230110
  Transmission Date: 20230418
  Serious: No
  Sender: FDA-Public Use
  Company Number: None

PATIENT
  Sex: Female

DRUGS (10)
  1. HUMIRA [Suspect]
     Active Substance: ADALIMUMAB
     Indication: Rheumatoid arthritis
     Dosage: 40MG/0.4ML SUBCUTANEOUS? ?INJECT 0.4 ML UNDER THE SKIN (SUBCUTANEOUS INJECTION) EVERY 2 WEEKS IN THE
     Route: 058
     Dates: start: 20220928
  2. ESTRADIOL [Concomitant]
     Active Substance: ESTRADIOL
  3. FOLIC ACID [Concomitant]
     Active Substance: FOLIC ACID
  4. HYDROCHLOROT TAB [Concomitant]
  5. METHOTREXATE [Concomitant]
     Active Substance: METHOTREXATE
  6. SYNTHROID TAB [Concomitant]
  7. VASCEPA CAP [Concomitant]
  8. VITAMIN D CAP [Concomitant]
  9. XYZAL TAB [Concomitant]
  10. ZINC TAB [Concomitant]

REACTIONS (5)
  - Pain [None]
  - Fatigue [None]
  - Rheumatoid arthritis [None]
  - Surgery [None]
  - Therapy interrupted [None]
